FAERS Safety Report 7584130-1 (Version None)
Quarter: 2011Q2

REPORT INFORMATION
  Report Type: 
  Country: None (occurrence: None)
  Receive Date: 20110630
  Receipt Date: 20110628
  Transmission Date: 20111010
  Serious: Yes (Other)
  Sender: FDA-Public Use
  Company Number: CA-PFIZER INC-2011145130

PATIENT
  Age: 47 Year
  Sex: Female

DRUGS (2)
  1. ESCITALOPRAM [Concomitant]
     Dosage: 10 MG, UNK
     Dates: start: 20100801
  2. LYRICA [Suspect]
     Dosage: 150 MG, UNK
     Dates: start: 20081001, end: 20110628

REACTIONS (1)
  - DEMENTIA [None]
